FAERS Safety Report 8679215 (Version 3)
Quarter: 2014Q3

REPORT INFORMATION
  Report Type: Spontaneous
  Country: US (occurrence: US)
  Receive Date: 20120724
  Receipt Date: 20140805
  Transmission Date: 20150326
  Serious: Yes (Life-Threatening, Hospitalization, Disabling)
  Sender: FDA-Public Use
  Company Number: US-BAYER-2012-073340

PATIENT
  Age: 33 Year
  Sex: Female
  Weight: 81.63 kg

DRUGS (5)
  1. BEYAZ [Suspect]
     Active Substance: DROSPIRENONE\ETHINYL ESTRADIOL\LEVOMEFOLATE CALCIUM
     Indication: PREMENSTRUAL SYNDROME
  2. LO LOESTRIN FE [Concomitant]
     Active Substance: ETHINYL ESTRADIOL\NORETHINDRONE ACETATE
  3. YAZ [Suspect]
     Active Substance: DROSPIRENONE\ETHINYL ESTRADIOL
     Indication: CONTRACEPTION
     Dosage: UNK
     Dates: start: 201006, end: 201101
  4. YAZ [Suspect]
     Active Substance: DROSPIRENONE\ETHINYL ESTRADIOL
     Indication: PREMENSTRUAL SYNDROME
  5. BEYAZ [Suspect]
     Active Substance: DROSPIRENONE\ETHINYL ESTRADIOL\LEVOMEFOLATE CALCIUM
     Indication: CONTRACEPTION
     Dosage: UNK
     Dates: start: 201101, end: 201104

REACTIONS (12)
  - Peripheral swelling [None]
  - Fear [None]
  - General physical health deterioration [None]
  - Activities of daily living impaired [None]
  - Pulmonary embolism [None]
  - Anxiety [None]
  - Anhedonia [None]
  - Pain [None]
  - Vein disorder [None]
  - Injury [None]
  - Deep vein thrombosis [None]
  - Emotional distress [None]

NARRATIVE: CASE EVENT DATE: 201104
